FAERS Safety Report 19912360 (Version 1)
Quarter: 2021Q4

REPORT INFORMATION
  Report Type: Spontaneous
  Country: PT (occurrence: PT)
  Receive Date: 20211004
  Receipt Date: 20211004
  Transmission Date: 20220303
  Serious: Yes (Other)
  Sender: FDA-Public Use
  Company Number: PT-AKCEA THERAPEUTICS, INC.-2021IS001719

PATIENT
  Age: 68 Year
  Sex: Male

DRUGS (2)
  1. TEGSEDI [Suspect]
     Active Substance: INOTERSEN SODIUM
     Indication: Hereditary neuropathic amyloidosis
     Route: 058
  2. DEVICE [Suspect]
     Active Substance: DEVICE

REACTIONS (8)
  - Ocular hypertension [Unknown]
  - Glaucoma [Unknown]
  - Glaucoma drainage device placement [Unknown]
  - Visual acuity reduced [Unknown]
  - Vitreous opacities [Unknown]
  - Vitrectomy [Unknown]
  - Vitreous floaters [Unknown]
  - Off label use [Unknown]
